FAERS Safety Report 10057654 (Version 2)
Quarter: 2014Q2

REPORT INFORMATION
  Report Type: Spontaneous
  Country: US (occurrence: US)
  Receive Date: 20140404
  Receipt Date: 20140423
  Transmission Date: 20141212
  Serious: Yes (Hospitalization)
  Sender: FDA-Public Use
  Company Number: US-BIOGENIDEC-2014BI030882

PATIENT
  Age: 42 Year
  Sex: Female

DRUGS (10)
  1. TYSABRI [Suspect]
     Indication: MULTIPLE SCLEROSIS
     Route: 042
     Dates: start: 20100725, end: 20120323
  2. TYSABRI [Suspect]
     Indication: MULTIPLE SCLEROSIS
     Route: 042
     Dates: start: 20130716, end: 20140117
  3. AMITRIPTYLINE HCL [Concomitant]
     Route: 048
  4. BACLOFEN [Concomitant]
     Route: 048
  5. CLONAZEPAM [Concomitant]
     Route: 048
  6. GABAPENTIN [Concomitant]
     Route: 048
  7. LEVOTHROID [Concomitant]
     Route: 048
  8. MELOXICAM [Concomitant]
     Route: 048
  9. OXYCODONE-ACETAMINOPHEN [Concomitant]
     Route: 048
  10. BETASERON [Concomitant]

REACTIONS (5)
  - Gait disturbance [Not Recovered/Not Resolved]
  - Peripheral swelling [Unknown]
  - Palpitations [Unknown]
  - Chest discomfort [Unknown]
  - Chest pain [Unknown]
